FAERS Safety Report 9306598 (Version 2)
Quarter: 2013Q1

REPORT INFORMATION
  Report Type: Spontaneous
  Country: US (occurrence: None)
  Receive Date: 20130214
  Receipt Date: 20130228
  Transmission Date: 20140127
  Serious: Yes (Other)
  Sender: FDA-Public Use
  Company Number: ACO_32864_2012

PATIENT
  Sex: Female
  Weight: 90.7 kg

DRUGS (6)
  1. AMPYRA (DALFAMPRIDINE) TABLET [Suspect]
     Route: 048
     Dates: start: 201109
  2. METOPROLOL (METOPROLOL TARTRATE) [Concomitant]
  3. DITROPAN [Concomitant]
  4. XANAX (ALPRAZOLAM) [Concomitant]
  5. BACLOFEN (BACLOFEN) [Concomitant]
  6. COPAXONE (GLATIRAMER ACETATE) [Concomitant]

REACTIONS (1)
  - Hallucination [None]
